FAERS Safety Report 7624395-0 (Version None)
Quarter: 2011Q3

REPORT INFORMATION
  Report Type: 
  Country: None (occurrence: None)
  Receive Date: 20110720
  Receipt Date: 20110708
  Transmission Date: 20111222
  Serious: Yes (Other)
  Sender: FDA-Public Use
  Company Number: BR-PFIZER INC-2011155664

PATIENT

DRUGS (2)
  1. PRISTIQ [Suspect]
     Dosage: UNK
     Route: 048
     Dates: start: 20110201
  2. PRISTIQ [Suspect]
     Dosage: UNK, ALTERNATE DAY
     Route: 048
     Dates: start: 20110101

REACTIONS (8)
  - INSOMNIA [None]
  - WITHDRAWAL SYNDROME [None]
  - DIZZINESS [None]
  - VERTIGO [None]
  - ANGER [None]
  - NAUSEA [None]
  - BLOOD PRESSURE DECREASED [None]
  - HYPERHIDROSIS [None]
